FAERS Safety Report 19382172 (Version 1)
Quarter: 2021Q2

REPORT INFORMATION
  Report Type: Spontaneous
  Country: US (occurrence: US)
  Receive Date: 20210607
  Receipt Date: 20210607
  Transmission Date: 20210717
  Serious: No
  Sender: FDA-Public Use
  Company Number: US-PFIZER INC-2021258358

PATIENT
  Age: 62 Year
  Sex: Female

DRUGS (3)
  1. IBRANCE [Suspect]
     Active Substance: PALBOCICLIB
     Dosage: 125 MG
     Dates: start: 20210212
  2. IBRANCE [Suspect]
     Active Substance: PALBOCICLIB
     Dosage: 125 MG
     Dates: start: 20210101, end: 20210205
  3. IBRANCE [Suspect]
     Active Substance: PALBOCICLIB
     Dosage: 125 MG
     Dates: start: 20210217

REACTIONS (6)
  - Fatigue [Recovered/Resolved]
  - Product dose omission issue [Unknown]
  - Diarrhoea [Unknown]
  - Blood test abnormal [Unknown]
  - Discouragement [Unknown]
  - Weight increased [Unknown]

NARRATIVE: CASE EVENT DATE: 2021
